FAERS Safety Report 15821402 (Version 2)
Quarter: 2019Q1

REPORT INFORMATION
  Report Type: Spontaneous
  Country: GB (occurrence: GB)
  Receive Date: 20190114
  Receipt Date: 20190125
  Transmission Date: 20190417
  Serious: Yes (Other)
  Sender: FDA-Public Use
  Company Number: GB-BAYER-2019-007659

PATIENT
  Age: 30 Year
  Sex: Female

DRUGS (2)
  1. MIRENA [Suspect]
     Active Substance: LEVONORGESTREL
     Indication: CONTRACEPTION
     Dosage: 20 MCG/24HR, CONT
     Route: 015
     Dates: start: 20180707
  2. MIRENA [Suspect]
     Active Substance: LEVONORGESTREL
     Indication: CONTRACEPTION

REACTIONS (10)
  - Abdominal pain upper [None]
  - Adverse drug reaction [None]
  - Menorrhagia [None]
  - Malaise [None]
  - Patient dissatisfaction with device [Not Recovered/Not Resolved]
  - Stress [None]
  - Hospitalisation [Recovered/Resolved]
  - Weight increased [None]
  - Amenorrhoea [None]
  - Menstrual disorder [None]
